FAERS Safety Report 21915252 (Version 2)
Quarter: 2023Q4

REPORT INFORMATION
  Report Type: Spontaneous
  Country: US (occurrence: US)
  Receive Date: 20230126
  Receipt Date: 20231009
  Transmission Date: 20240110
  Serious: Yes (Death, Other)
  Sender: FDA-Public Use
  Company Number: US-AMGEN-USASP2023010547

PATIENT

DRUGS (6)
  1. BEVACIZUMAB [Suspect]
     Active Substance: BEVACIZUMAB
     Indication: Neuroendocrine carcinoma of the cervix
     Dosage: 15 MILLIGRAM PER KILOGRAM, ON DAY 1 ON A 21-DAY CYCLE
     Route: 065
  2. TOPOTECAN [Concomitant]
     Active Substance: TOPOTECAN HYDROCHLORIDE
     Indication: Neuroendocrine carcinoma of the cervix
     Dosage: 0.75 MILLIGRAM PER SQUARE METRE, ON DAYS 1 TO 3 ON A 21-DAY CYCLE
  3. PACLITAXEL [Concomitant]
     Active Substance: PACLITAXEL
     Indication: Neuroendocrine carcinoma of the cervix
     Dosage: 175 MILLIGRAM PER SQUARE METRE, ON DAY 1 ON A 21-DAY CYCLE
  4. PLATINUM [Concomitant]
     Active Substance: PLATINUM
     Indication: Neuroendocrine carcinoma of the cervix
     Dosage: UNK
  5. DOCETAXEL [Concomitant]
     Active Substance: DOCETAXEL
     Indication: Neuroendocrine carcinoma of the cervix
     Dosage: UNK
  6. PEMBROLIZUMAB [Concomitant]
     Active Substance: PEMBROLIZUMAB
     Indication: Neuroendocrine carcinoma of the cervix
     Dosage: UNK

REACTIONS (4)
  - Death [Fatal]
  - Neuroendocrine carcinoma of the cervix [Unknown]
  - Therapy partial responder [Unknown]
  - Adverse event [Unknown]
